FAERS Safety Report 7113128-2 (Version None)
Quarter: 2010Q4

REPORT INFORMATION
  Report Type: 
  Country: None (occurrence: None)
  Receive Date: 20101119
  Receipt Date: 20101115
  Transmission Date: 20110411
  Serious: Yes (Other)
  Sender: FDA-Public Use
  Company Number: US-BRACCO-005502

PATIENT
  Sex: Male

DRUGS (1)
  1. ISOVUE-128 [Suspect]
     Indication: COMPUTERISED TOMOGRAM
     Route: 042
     Dates: start: 20101001, end: 20101001

REACTIONS (1)
  - STAPHYLOCOCCAL INFECTION [None]
